FAERS Safety Report 23164561 (Version 9)
Quarter: 2024Q2

REPORT INFORMATION
  Report Type: Report from Study
  Country: CA (occurrence: CA)
  Receive Date: 20231109
  Receipt Date: 20240408
  Transmission Date: 20240716
  Serious: Yes (Death, Hospitalization, Other)
  Sender: FDA-Public Use
  Company Number: CA-Korea IPSEN-2023-15095

PATIENT
  Age: 46 Year
  Sex: Male

DRUGS (16)
  1. LANREOTIDE ACETATE [Suspect]
     Active Substance: LANREOTIDE ACETATE
     Indication: Carcinoid syndrome
     Dosage: VIA DEEP SUBCUTANEOUS ROUTE
     Route: 058
     Dates: start: 20230324
  2. LANREOTIDE ACETATE [Suspect]
     Active Substance: LANREOTIDE ACETATE
     Dosage: VIA DEEP SUBCUTANEOUS ROUTE
     Route: 058
  3. GABAPENTIN [Concomitant]
     Active Substance: GABAPENTIN
     Dosage: 100 MG 1 CO DIE
  4. GABAPENTIN [Concomitant]
     Active Substance: GABAPENTIN
     Dosage: 300 MG 1 CO DIE
  5. CLONIDINE [Concomitant]
     Active Substance: CLONIDINE
     Dosage: 0.025 MG 2 CO BID
  6. ALLOPURINOL [Concomitant]
     Active Substance: ALLOPURINOL
     Dosage: 200 MG 1 CO DIE
  7. INDAPAMIDE\PERINDOPRIL [Concomitant]
     Active Substance: INDAPAMIDE\PERINDOPRIL
     Dosage: 8 MG/2.5 MG 1 CO DIE
  8. CCOLCHICINE [Concomitant]
     Dosage: 1 CO DIE
  9. CITALOPRAM [Concomitant]
     Active Substance: CITALOPRAM\CITALOPRAM HYDROBROMIDE
     Dosage: 20 MG 1 CO DIE
  10. CREON [Concomitant]
     Active Substance: PANCRELIPASE AMYLASE\PANCRELIPASE LIPASE\PANCRELIPASE PROTEASE
     Dosage: 2-4 CO WITH EACH MEALS
  11. PANTOPRAZOLE [Concomitant]
     Active Substance: PANTOPRAZOLE
     Dosage: 40 MG 1 CO DIE
  12. ONDANSETRON [Concomitant]
     Active Substance: ONDANSETRON
     Dosage: 8 MG PRN
  13. DICLOFENAC [Concomitant]
     Active Substance: DICLOFENAC
     Dosage: 50 MG SUPPOSITORY PRN
  14. EPIPEN [Concomitant]
     Active Substance: EPINEPHRINE
     Dosage: 1 MG/ML PRN
  15. PREDNISONE [Concomitant]
     Active Substance: PREDNISONE
     Dosage: 5 MG PO OD PRN
     Route: 048
  16. OXYCODONE HYDROCHLORIDE [Concomitant]
     Active Substance: OXYCODONE HYDROCHLORIDE
     Dosage: 80 MG Q 4-5 HRS

REACTIONS (21)
  - Carcinoid heart disease [Unknown]
  - Hepatic enzyme increased [Unknown]
  - Ascites [Unknown]
  - Decreased appetite [Unknown]
  - Pain [Unknown]
  - Ventricular septal defect [Unknown]
  - Malignant neoplasm progression [Unknown]
  - Malignant gastrointestinal obstruction [Unknown]
  - Pneumonia aspiration [Unknown]
  - Cardiac arrest [Fatal]
  - Gastrointestinal pain [Not Recovered/Not Resolved]
  - Dyspepsia [Unknown]
  - SARS-CoV-2 test positive [Not Recovered/Not Resolved]
  - Diarrhoea [Unknown]
  - Carcinoid crisis [Unknown]
  - Swelling face [Unknown]
  - Blood pressure increased [Unknown]
  - Fall [Unknown]
  - Altered state of consciousness [Unknown]
  - Head injury [Unknown]
  - Off label use [Unknown]

NARRATIVE: CASE EVENT DATE: 20230906
